FAERS Safety Report 4314927-2 (Version None)
Quarter: 2004Q1

REPORT INFORMATION
  Report Type: 
  Country: None (occurrence: None)
  Receive Date: 20040310
  Receipt Date: 20031002
  Transmission Date: 20041129
  Serious: Yes (Death, Hospitalization, Disabling)
  Sender: FDA-Public Use
  Company Number: WAES 0310USA00338

PATIENT
  Age: 55 Year
  Sex: Male

DRUGS (1)
  1. VIOXX [Suspect]
     Indication: BACK PAIN
     Route: 048
     Dates: start: 20010613, end: 20010904

REACTIONS (11)
  - ATHEROSCLEROSIS [None]
  - CARDIAC ARREST [None]
  - CARDIO-RESPIRATORY ARREST [None]
  - CARDIOMEGALY [None]
  - CHOLELITHIASIS [None]
  - CIRCULATORY COLLAPSE [None]
  - COMA [None]
  - EMPHYSEMA [None]
  - HEPATOMEGALY [None]
  - HYPERLIPIDAEMIA [None]
  - PULMONARY CONGESTION [None]
